FAERS Safety Report 6484069-9 (Version None)
Quarter: 2009Q4

REPORT INFORMATION
  Report Type: 
  Country: None (occurrence: None)
  Receive Date: 20091209
  Receipt Date: 20091124
  Transmission Date: 20100525
  Serious: Yes (Hospitalization)
  Sender: FDA-Public Use
  Company Number: AT-CELGENEUS-009-21880-09111846

PATIENT
  Sex: Male
  Weight: 85.2 kg

DRUGS (6)
  1. REVLIMID [Suspect]
     Route: 048
     Dates: start: 20091029
  2. REVLIMID [Suspect]
     Route: 048
     Dates: end: 20091122
  3. FLUDARABINE [Suspect]
     Route: 051
     Dates: start: 20091022, end: 20091121
  4. RITUXIMAB [Suspect]
     Route: 051
     Dates: start: 20091022, end: 20091119
  5. T-ASS [Concomitant]
     Indication: DRUG USE FOR UNKNOWN INDICATION
     Route: 065
     Dates: start: 20070903
  6. SELOKEN [Concomitant]
     Indication: DRUG USE FOR UNKNOWN INDICATION
     Route: 065
     Dates: start: 20070903

REACTIONS (1)
  - TUMOUR FLARE [None]
